FAERS Safety Report 10555338 (Version 2)
Quarter: 2015Q1

REPORT INFORMATION
  Report Type: Spontaneous
  Country: US (occurrence: US)
  Receive Date: 20141030
  Receipt Date: 20150316
  Transmission Date: 20150720
  Serious: Yes (Hospitalization, Other)
  Sender: FDA-Public Use
  Company Number: US-BAYER-2014-156952

PATIENT
  Age: 25 Year
  Sex: Female
  Weight: 77.98 kg

DRUGS (2)
  1. MIRENA [Suspect]
     Active Substance: LEVONORGESTREL
     Indication: CONTRACEPTION
     Dosage: 20 MCG/24HR, CONT
     Route: 015
     Dates: start: 20080124, end: 20121002
  2. METOPROLOL [Concomitant]
     Active Substance: METOPROLOL
     Indication: HYPERTENSION
     Dosage: UNK
     Dates: start: 2000

REACTIONS (11)
  - Pain [None]
  - Abdominal pain lower [None]
  - Post procedural discomfort [None]
  - Cervical discharge [None]
  - Pelvic inflammatory disease [None]
  - Vaginal discharge [None]
  - Uterine tenderness [None]
  - Device difficult to use [None]
  - Embedded device [None]
  - Injury [None]
  - Device issue [None]

NARRATIVE: CASE EVENT DATE: 20120925
